FAERS Safety Report 25556751 (Version 1)
Quarter: 2025Q3

REPORT INFORMATION
  Report Type: Spontaneous
  Country: US (occurrence: None)
  Receive Date: 20250715
  Receipt Date: 20250715
  Transmission Date: 20251020
  Serious: Yes (Other)
  Sender: FDA-CTU
  Company Number: None

PATIENT
  Age: 75 Year
  Sex: Male
  Weight: 70.3 kg

DRUGS (2)
  1. LECANEMAB-IRMB [Suspect]
     Active Substance: LECANEMAB-IRMB
     Indication: Dementia Alzheimer^s type
     Route: 042
     Dates: start: 20250430, end: 20250611
  2. LECANEMAB-IRMB [Concomitant]
     Active Substance: LECANEMAB-IRMB
     Dates: start: 20250430, end: 20250611

REACTIONS (2)
  - Cerebral haemorrhage [None]
  - Amyloid related imaging abnormality-microhaemorrhages and haemosiderin deposits [None]

NARRATIVE: CASE EVENT DATE: 20250612
